FAERS Safety Report 8609613-4 (Version None)
Quarter: 2012Q3

REPORT INFORMATION
  Report Type: 
  Country: None (occurrence: None)
  Receive Date: 20120821
  Receipt Date: 20120808
  Transmission Date: 20120928
  Serious: Yes (Hospitalization)
  Sender: FDA-Public Use
  Company Number: US-ARROW-2012-14164

PATIENT
  Age: 36 Year
  Sex: Female

DRUGS (7)
  1. EXCEDRIN TENSION HEADACHE CAPLETS [Suspect]
     Indication: MIGRAINE
     Dosage: 2 GEL CAPSULES AS NEEDED
     Route: 048
     Dates: start: 20110101, end: 20120601
  2. EXCEDRIN EXTRA STRENGTH CAPLETS [Suspect]
     Indication: MIGRAINE
     Dosage: 2 DOSES STARTING IN 2007 OR 2008
     Route: 048
  3. CRESTOR [Suspect]
     Indication: PRODUCT USED FOR UNKNOWN INDICATION
     Dosage: UNK
     Route: 065
  4. EXCEDRIN (MIGRAINE) [Suspect]
     Indication: MIGRAINE
     Dosage: 2 GELTABS STARTING IN 2007 OR 2008
     Route: 048
  5. LISINOPRIL [Suspect]
     Indication: PRODUCT USED FOR UNKNOWN INDICATION
     Dosage: UNK
     Route: 065
  6. LORTAB [Suspect]
     Indication: PRODUCT USED FOR UNKNOWN INDICATION
     Dosage: UNK
     Route: 065
  7. FENOFIBRATE [Suspect]
     Indication: PRODUCT USED FOR UNKNOWN INDICATION
     Dosage: UNK
     Route: 065

REACTIONS (3)
  - SCAR [None]
  - DRUG SCREEN POSITIVE [None]
  - CERVIX DISORDER [None]
